FAERS Safety Report 12304818 (Version 3)
Quarter: 2016Q2

REPORT INFORMATION
  Report Type: Spontaneous
  Country: PL (occurrence: PL)
  Receive Date: 20160426
  Receipt Date: 20160510
  Transmission Date: 20160815
  Serious: Yes (Life-Threatening, Hospitalization, Other)
  Sender: FDA-Public Use
  Company Number: PL-ROCHE-1746736

PATIENT
  Age: 56 Year
  Sex: Female

DRUGS (20)
  1. 5-FLUOROURACIL [Concomitant]
     Active Substance: FLUOROURACIL
     Indication: COLON CANCER
     Route: 042
     Dates: start: 20151205, end: 20160329
  2. EBRANTIL [Concomitant]
     Active Substance: URAPIDIL
  3. BETALOC [Concomitant]
     Active Substance: METOPROLOL TARTRATE
  4. KETONAL (POLAND) [Concomitant]
  5. AMIOKORDIN [Concomitant]
  6. HEPARINUM WZF [Concomitant]
  7. OXALIPLATIN. [Concomitant]
     Active Substance: OXALIPLATIN
     Indication: COLON CANCER
     Route: 042
     Dates: start: 20151205, end: 20160329
  8. MANNITOL. [Concomitant]
     Active Substance: MANNITOL
     Dosage: 20 %
     Route: 065
  9. NATRIUM CHLORICUM [Concomitant]
  10. LEVOFOLIC [Concomitant]
     Active Substance: LEUCOVORIN
     Indication: COLON CANCER
     Route: 042
     Dates: start: 20151205, end: 20160329
  11. CAPTOPRIL. [Concomitant]
     Active Substance: CAPTOPRIL
  12. AVASTIN [Suspect]
     Active Substance: BEVACIZUMAB
     Indication: COLON CANCER
     Route: 042
     Dates: start: 20151205, end: 20160329
  13. ONDANSETRON [Concomitant]
     Active Substance: ONDANSETRON
     Route: 065
     Dates: start: 20151205, end: 20160329
  14. DEXAMETHASON [Concomitant]
     Active Substance: DEXAMETHASONE
     Route: 042
     Dates: start: 20151205, end: 20160329
  15. AMLODIPINE [Concomitant]
     Active Substance: AMLODIPINE BESYLATE
  16. METOPROLOL TARTRATE. [Concomitant]
     Active Substance: METOPROLOL TARTRATE
  17. MIDANIUM [Concomitant]
     Active Substance: MIDAZOLAM HYDROCHLORIDE
  18. POLPRIL [Concomitant]
     Active Substance: RAMIPRIL
  19. HYDROXIZINUM [Concomitant]
  20. NAPROXEN. [Concomitant]
     Active Substance: NAPROXEN
     Route: 065

REACTIONS (3)
  - Central nervous system haemorrhage [Unknown]
  - Subarachnoid haemorrhage [Unknown]
  - Metastases to central nervous system [Unknown]

NARRATIVE: CASE EVENT DATE: 20160406
